FAERS Safety Report 8614269-0 (Version None)
Quarter: 2012Q3

REPORT INFORMATION
  Report Type: 
  Country: None (occurrence: None)
  Receive Date: 20120813
  Receipt Date: 20120813
  Transmission Date: 20120928
  Serious: Yes (Hospitalization)
  Sender: FDA-Public Use
  Company Number: None

PATIENT
  Age: 74 Year
  Sex: Male
  Weight: 139.1 kg

DRUGS (1)
  1. TERBINAFINE HCL [Suspect]
     Indication: FUNGAL INFECTION
     Dosage: 250 MG EVERY DAY PO
     Route: 048
     Dates: start: 20120509, end: 20120517

REACTIONS (5)
  - BLOOD GLUCOSE INCREASED [None]
  - NAUSEA [None]
  - DIZZINESS [None]
  - VOMITING [None]
  - PANCREATITIS ACUTE [None]
